FAERS Safety Report 14413776 (Version 1)
Quarter: 2018Q1

REPORT INFORMATION
  Report Type: Spontaneous
  Country: US (occurrence: US)
  Receive Date: 20180117
  Receipt Date: 20180117
  Transmission Date: 20180509
  Serious: No
  Sender: FDA-Public Use
  Company Number: None

PATIENT
  Age: 65 Year
  Sex: Female

DRUGS (17)
  1. METHENAMINE [Concomitant]
     Active Substance: METHENAMINE
  2. VITAMIN B12 [Concomitant]
     Active Substance: CYANOCOBALAMIN
  3. SOLU-MEDROL [Concomitant]
     Active Substance: METHYLPREDNISOLONE SODIUM SUCCINATE
  4. VITAMIN D [Concomitant]
     Active Substance: CHOLECALCIFEROL
  5. BACTRIM [Concomitant]
     Active Substance: SULFAMETHOXAZOLE\TRIMETHOPRIM
  6. CRANBERRY TABS [Concomitant]
  7. VANCOMYCIN [Concomitant]
     Active Substance: VANCOMYCIN
  8. ZANTAC [Concomitant]
     Active Substance: RANITIDINE HYDROCHLORIDE
  9. METOPROLOL TARTRATE. [Concomitant]
     Active Substance: METOPROLOL TARTRATE
  10. MIRTAZAPINE. [Concomitant]
     Active Substance: MIRTAZAPINE
  11. TRIMETHOPRIME [Concomitant]
     Active Substance: TRIMETHOPRIM
  12. ATELVIA [Concomitant]
     Active Substance: RISEDRONATE SODIUM
  13. REBIF [Suspect]
     Active Substance: INTERFERON BETA-1A
     Indication: MULTIPLE SCLEROSIS
     Dosage: 44MCG/0.5ML TIW SUBCUTANEOUSLY
     Route: 058
     Dates: start: 20140910
  14. XARELTO [Concomitant]
     Active Substance: RIVAROXABAN
  15. BACLOFEN. [Concomitant]
     Active Substance: BACLOFEN
  16. PROBIOTIC [Concomitant]
     Active Substance: PROBIOTICS NOS
  17. MELATONIN [Concomitant]
     Active Substance: MELATONIN

REACTIONS (1)
  - Skin infection [None]

NARRATIVE: CASE EVENT DATE: 201711
